FAERS Safety Report 18128473 (Version 1)
Quarter: 2020Q3

REPORT INFORMATION
  Report Type: Spontaneous
  Country: US (occurrence: US)
  Receive Date: 20200808
  Receipt Date: 20200808
  Transmission Date: 20201103
  Serious: Yes (Other)
  Sender: FDA-Public Use
  Company Number: None

PATIENT
  Age: 52 Year
  Sex: Female
  Weight: 58.5 kg

DRUGS (1)
  1. BLUMEN ADVANCED HAND SANITIZER CLEAR [Suspect]
     Active Substance: ALCOHOL
     Indication: COVID-19 PROPHYLAXIS
     Dosage: ?          OTHER FREQUENCY:10 TIMES;OTHER ROUTE:HANDS A MASK APPLIED TO FACE?
     Dates: start: 20200515, end: 20200807

REACTIONS (4)
  - Headache [None]
  - Lethargy [None]
  - Fatigue [None]
  - Diarrhoea [None]

NARRATIVE: CASE EVENT DATE: 20200807
